FAERS Safety Report 7478316-4 (Version None)
Quarter: 2011Q2

REPORT INFORMATION
  Report Type: 
  Country: None (occurrence: None)
  Receive Date: 20110513
  Receipt Date: 20110415
  Transmission Date: 20111010
  Serious: Yes (Other)
  Sender: FDA-Public Use
  Company Number: US-BAYER-200936242NA

PATIENT
  Age: 73 Year
  Sex: Male
  Weight: 88.182 kg

DRUGS (17)
  1. MAGNEVIST [Suspect]
     Indication: ANGIOGRAM
     Dosage: UNK
     Dates: start: 19890111, end: 19890111
  2. OMNISCAN [Suspect]
     Indication: ANGIOGRAM
  3. MAGNEVIST [Suspect]
     Dosage: UNK
     Dates: start: 19990917, end: 19990917
  4. OMNISCAN [Suspect]
  5. CONTRAST MEDIA [Suspect]
     Indication: ANGIOGRAM
  6. CALCIUM CARBONATE [Concomitant]
  7. CONTRAST MEDIA [Suspect]
     Indication: PAIN IN EXTREMITY
  8. ASPIRIN [Concomitant]
  9. MAGNEVIST [Suspect]
     Indication: NUCLEAR MAGNETIC RESONANCE IMAGING
     Dosage: UNK
     Dates: start: 19890112, end: 19890112
  10. METOPROLOL SUCCINATE [Concomitant]
  11. MAGNEVIST [Suspect]
     Dates: start: 19990916, end: 19990916
  12. PLAVIX [Concomitant]
  13. AMLODIPINE BESYLATE [Concomitant]
  14. OMNISCAN [Suspect]
     Indication: NUCLEAR MAGNETIC RESONANCE IMAGING
  15. MAGNEVIST [Suspect]
  16. PLAVIX [Concomitant]
  17. PREDNISONE [Concomitant]

REACTIONS (22)
  - PAIN [None]
  - JOINT INJURY [None]
  - MUSCLE SPASMS [None]
  - SKIN TIGHTNESS [None]
  - DEFORMITY [None]
  - SKIN FIBROSIS [None]
  - OEDEMA PERIPHERAL [None]
  - PRURITUS [None]
  - XEROSIS [None]
  - SKIN MASS [None]
  - DRY SKIN [None]
  - SKIN DISCOLOURATION [None]
  - MUSCULAR WEAKNESS [None]
  - SKIN LESION [None]
  - BURNING SENSATION [None]
  - HYPOAESTHESIA [None]
  - MOBILITY DECREASED [None]
  - NEPHROGENIC SYSTEMIC FIBROSIS [None]
  - PAIN OF SKIN [None]
  - JOINT RANGE OF MOTION DECREASED [None]
  - PRURITUS GENERALISED [None]
  - PAIN IN EXTREMITY [None]
